FAERS Safety Report 10566850 (Version 3)
Quarter: 2015Q2

REPORT INFORMATION
  Report Type: Spontaneous
  Country: JP (occurrence: JP)
  Receive Date: 20141105
  Receipt Date: 20150410
  Transmission Date: 20150821
  Serious: Yes (Death)
  Sender: FDA-Public Use
  Company Number: JP-MALLINCKRODT-T201401028

PATIENT
  Age: 47 Year
  Sex: Female
  Weight: 38 kg

DRUGS (17)
  1. METHADONE [Suspect]
     Active Substance: METHADONE HYDROCHLORIDE
     Dosage: UNK (DAILY DOSE 50 MG)
     Route: 048
     Dates: start: 20130911, end: 20130913
  2. METHADONE [Suspect]
     Active Substance: METHADONE HYDROCHLORIDE
     Dosage: 15 MG (DAILY DOSE 45 MG)
     Route: 048
     Dates: start: 20130914, end: 20130916
  3. METHADONE [Suspect]
     Active Substance: METHADONE HYDROCHLORIDE
     Dosage: 10 MG (DAILY DOSE 30 MG)
     Route: 048
     Dates: start: 20130821, end: 20130827
  4. METHADONE [Suspect]
     Active Substance: METHADONE HYDROCHLORIDE
     Dosage: UNK (DAILY DOSE 35 MG)
     Route: 048
     Dates: start: 20130828, end: 20130904
  5. FENTOS [Concomitant]
     Active Substance: FENTANYL
     Dosage: 8 MG
     Route: 062
     Dates: start: 20130807, end: 20130814
  6. FENTOS [Concomitant]
     Active Substance: FENTANYL
     Dosage: 1 MG
     Route: 062
     Dates: start: 20130830, end: 20130905
  7. FENTANYL. [Concomitant]
     Active Substance: FENTANYL
     Dosage: 62.5 ?G, PRN
     Route: 051
     Dates: start: 20130806
  8. METHADONE [Suspect]
     Active Substance: METHADONE HYDROCHLORIDE
     Dosage: UNK (DAILY DOSE 35 MG)
     Route: 048
     Dates: start: 20130917, end: 20130920
  9. FENTOS [Concomitant]
     Active Substance: FENTANYL
     Dosage: 12 MG
     Route: 062
     Dates: start: 20130802, end: 20130807
  10. FENTOS [Concomitant]
     Active Substance: FENTANYL
     Dosage: 4 MG
     Route: 062
     Dates: start: 20130814, end: 20130821
  11. NEXIUM [Concomitant]
     Active Substance: ESOMEPRAZOLE MAGNESIUM
     Dosage: 10 MG
     Route: 048
     Dates: end: 20130919
  12. METHADONE [Suspect]
     Active Substance: METHADONE HYDROCHLORIDE
     Indication: CANCER PAIN
     Dosage: 5 MG (DAILY DOSE 15 MG)
     Route: 048
     Dates: start: 20130807, end: 20130813
  13. METHADONE [Suspect]
     Active Substance: METHADONE HYDROCHLORIDE
     Dosage: UNK (DAILY DOSE 40 MG)
     Route: 048
     Dates: start: 20130905, end: 20130910
  14. UNASYN [Concomitant]
     Active Substance: AMPICILLIN SODIUM\SULBACTAM SODIUM
     Dosage: 300 G
     Route: 051
     Dates: start: 20130815, end: 20130826
  15. METHADONE [Suspect]
     Active Substance: METHADONE HYDROCHLORIDE
     Dosage: UNK (DAILY DOSE 20 MG)
     Route: 048
     Dates: start: 20130814, end: 20130820
  16. FENTOS [Concomitant]
     Active Substance: FENTANYL
     Dosage: 2 MG
     Route: 062
     Dates: start: 20130821, end: 20130830
  17. THYRADIN [Concomitant]
     Active Substance: LEVOTHYROXINE
     Dosage: 50 ?G
     Route: 048
     Dates: end: 20130919

REACTIONS (3)
  - Constipation [Recovering/Resolving]
  - Somnolence [Recovered/Resolved]
  - Hypopharyngeal cancer [Fatal]

NARRATIVE: CASE EVENT DATE: 20130828
